FAERS Safety Report 9587808 (Version 2)
Quarter: 2013Q4

REPORT INFORMATION
  Report Type: Spontaneous
  Country: US (occurrence: US)
  Receive Date: 20131003
  Receipt Date: 20131217
  Transmission Date: 20140711
  Serious: No
  Sender: FDA-Public Use
  Company Number: US-PFIZER INC-2013279945

PATIENT
  Age: 53 Year
  Sex: Male

DRUGS (5)
  1. SUTENT [Suspect]
     Indication: RENAL CANCER
     Dosage: 37.5 MG, DAILY CYCLIC (1 CAPSULE OF 12.5 MG AND 1 CAPSULE OF 25 MG), 4 WEEKS ON, 2 WEEKS OFF
     Route: 048
     Dates: start: 20130530
  2. SUTENT [Suspect]
     Indication: URINARY TRACT NEOPLASM
  3. MORPHINE [Concomitant]
     Dosage: UNK
  4. OXYCODONE [Concomitant]
     Dosage: UNK
  5. LORAZEPAM [Concomitant]
     Dosage: UNK

REACTIONS (3)
  - Abdominal pain [Unknown]
  - Flatulence [Unknown]
  - Pain [Unknown]
